FAERS Safety Report 7274957-8 (Version None)
Quarter: 2011Q1

REPORT INFORMATION
  Report Type: 
  Country: None (occurrence: None)
  Receive Date: 20110204
  Receipt Date: 20110128
  Transmission Date: 20110831
  Serious: Yes (Death, Other)
  Sender: FDA-Public Use
  Company Number: US-CELGENEUS-163-21880-11020239

PATIENT
  Age: 56 Year
  Sex: Female

DRUGS (5)
  1. DOXIL [Suspect]
     Indication: MULTIPLE MYELOMA
     Route: 065
  2. DEXAMETHASONE [Suspect]
     Indication: MULTIPLE MYELOMA
     Route: 065
  3. MELPHALAN [Suspect]
     Indication: MULTIPLE MYELOMA
     Route: 065
  4. VINCRISTINE [Suspect]
     Indication: MULTIPLE MYELOMA
     Route: 065
  5. CC-5013 [Suspect]
     Indication: MULTIPLE MYELOMA
     Route: 048

REACTIONS (2)
  - DEATH [None]
  - HODGKIN'S DISEASE [None]
